FAERS Safety Report 25735452 (Version 1)
Quarter: 2025Q3

REPORT INFORMATION
  Report Type: Spontaneous
  Country: CH (occurrence: CH)
  Receive Date: 20250828
  Receipt Date: 20250828
  Transmission Date: 20251020
  Serious: Yes (Life-Threatening)
  Sender: PFIZER
  Company Number: CH-PFIZER INC-PV202500102575

PATIENT
  Age: 37 Year
  Sex: Female

DRUGS (1)
  1. MISOPROSTOL [Suspect]
     Active Substance: MISOPROSTOL
     Indication: Abortion spontaneous incomplete

REACTIONS (4)
  - Off label use [Unknown]
  - Drug ineffective for unapproved indication [Unknown]
  - Vaginal haemorrhage [Unknown]
  - Shock haemorrhagic [Unknown]
